FAERS Safety Report 20561177 (Version 6)
Quarter: 2022Q3

REPORT INFORMATION
  Report Type: Spontaneous
  Country: US (occurrence: US)
  Receive Date: 20220307
  Receipt Date: 20220708
  Transmission Date: 20221027
  Serious: No
  Sender: FDA-Public Use
  Company Number: US-PFIZER INC-202200325037

PATIENT
  Age: 58 Year
  Sex: Female

DRUGS (4)
  1. IBRANCE [Suspect]
     Active Substance: PALBOCICLIB
     Dosage: UNK
     Dates: start: 20220207
  2. IBRANCE [Suspect]
     Active Substance: PALBOCICLIB
     Dosage: UNK
     Dates: start: 20220215
  3. IBRANCE [Suspect]
     Active Substance: PALBOCICLIB
     Dosage: 125 MG
  4. IBRANCE [Suspect]
     Active Substance: PALBOCICLIB
     Dosage: UNK
     Dates: start: 20220131, end: 2022

REACTIONS (10)
  - Fatigue [Recovered/Resolved]
  - Decreased appetite [Unknown]
  - White blood cell count decreased [Unknown]
  - Stomatitis [Recovered/Resolved]
  - Aphthous ulcer [Unknown]
  - Headache [Unknown]
  - Oral pain [Unknown]
  - Gingival disorder [Unknown]
  - Tooth disorder [Unknown]
  - Nausea [Unknown]

NARRATIVE: CASE EVENT DATE: 20220101
